FAERS Safety Report 16183413 (Version 2)
Quarter: 2019Q2

REPORT INFORMATION
  Report Type: Spontaneous
  Country: SE (occurrence: SE)
  Receive Date: 20190411
  Receipt Date: 20190430
  Transmission Date: 20190711
  Serious: Yes (Hospitalization, Other)
  Sender: FDA-Public Use
  Company Number: SE-JNJFOC-20190404502

PATIENT
  Age: 54 Year
  Sex: Female

DRUGS (4)
  1. IPREN [Suspect]
     Active Substance: IBUPROFEN
     Route: 065
  2. VOLTAREN [Suspect]
     Active Substance: DICLOFENAC SODIUM
     Indication: INFLAMMATION
     Route: 065
     Dates: start: 2016
  3. VOLTAREN [Suspect]
     Active Substance: DICLOFENAC SODIUM
     Indication: INFLAMMATION
     Route: 065
     Dates: start: 2016
  4. IPREN [Suspect]
     Active Substance: IBUPROFEN
     Indication: HEADACHE
     Route: 065
     Dates: start: 2016

REACTIONS (5)
  - Pruritus [Recovered/Resolved]
  - Movement disorder [Recovered/Resolved]
  - Anaphylactic shock [Recovered/Resolved]
  - Fall [Recovered/Resolved]
  - Rash generalised [Recovered/Resolved]

NARRATIVE: CASE EVENT DATE: 2016
